FAERS Safety Report 25503624 (Version 1)
Quarter: 2025Q3

REPORT INFORMATION
  Report Type: Report from Study
  Country: US (occurrence: US)
  Receive Date: 20250702
  Receipt Date: 20250702
  Transmission Date: 20251020
  Serious: Yes (Other)
  Sender: UCB
  Company Number: US-UCBSA-2025037982

PATIENT
  Age: 17 Year
  Sex: Male
  Weight: 26.8 kg

DRUGS (1)
  1. FINTEPLA [Suspect]
     Active Substance: FENFLURAMINE
     Indication: Lennox-Gastaut syndrome
     Dosage: 3 MILLILITER, 2X/DAY (BID)
     Route: 048
     Dates: start: 202406

REACTIONS (1)
  - Pulmonary valve incompetence [Unknown]

NARRATIVE: CASE EVENT DATE: 20250605
